FAERS Safety Report 16201285 (Version 2)
Quarter: 2019Q3

REPORT INFORMATION
  Report Type: Spontaneous
  Country: US (occurrence: US)
  Receive Date: 20190416
  Receipt Date: 20190702
  Transmission Date: 20191004
  Serious: Yes (Hospitalization, Other)
  Sender: FDA-Public Use
  Company Number: US-009507513-1904USA005514

PATIENT
  Age: 69 Year
  Sex: Male

DRUGS (1)
  1. KEYTRUDA [Suspect]
     Active Substance: PEMBROLIZUMAB
     Indication: UVEAL MELANOMA
     Dosage: RECEIVED ON DAY 0, 21, 44, 65
     Dates: start: 201705

REACTIONS (3)
  - Encephalitis [Recovered/Resolved]
  - Orchitis [Recovered/Resolved]
  - Immune-mediated adverse reaction [Recovered/Resolved]
